FAERS Safety Report 7559940-7 (Version None)
Quarter: 2011Q2

REPORT INFORMATION
  Report Type: 
  Country: None (occurrence: None)
  Receive Date: 20110621
  Receipt Date: 20110607
  Transmission Date: 20111010
  Serious: Yes (Hospitalization, Other)
  Sender: FDA-Public Use
  Company Number: PHHY2011FR50605

PATIENT
  Sex: Male

DRUGS (10)
  1. ALDACTONE [Concomitant]
  2. LASIX [Concomitant]
     Dosage: 120 MG,DAILY
  3. TEMERIT [Concomitant]
     Dosage: 2.5 MG, DAILY
  4. CALCIPARINE [Concomitant]
     Dosage: 0.6 ML, TID
  5. NEXIUM [Concomitant]
     Dosage: 40 MG, DAILY
  6. GLEEVEC [Suspect]
     Indication: CHRONIC MYELOID LEUKAEMIA
     Dosage: 300 MG, DAILY
     Dates: start: 20040101, end: 20110224
  7. COUMADIN [Concomitant]
     Dosage: 5 MG, DAILY
  8. CORDARONE [Concomitant]
     Indication: ATRIAL FIBRILLATION
  9. ASPEGIC 325 [Concomitant]
     Dosage: 250 MG,DAILY
  10. ATORVASTATIN CALCIUM [Concomitant]
     Dosage: 80 MG,DAILY

REACTIONS (15)
  - BLOOD CREATININE INCREASED [None]
  - OEDEMA PERIPHERAL [None]
  - NORMOCHROMIC NORMOCYTIC ANAEMIA [None]
  - ATRIAL FIBRILLATION [None]
  - CARDIAC FAILURE CONGESTIVE [None]
  - PLEURAL FIBROSIS [None]
  - MYOCARDIAL INFARCTION [None]
  - C-REACTIVE PROTEIN INCREASED [None]
  - HYPERTHYROIDISM [None]
  - RENAL FAILURE [None]
  - DYSPNOEA [None]
  - HYDROPNEUMOTHORAX [None]
  - ASTHENIA [None]
  - PLEURAL EFFUSION [None]
  - ACUTE CORONARY SYNDROME [None]
